FAERS Safety Report 7431774-3 (Version None)
Quarter: 2011Q1

REPORT INFORMATION
  Report Type: 
  Country: None (occurrence: None)
  Receive Date: 20110302
  Receipt Date: 20101116
  Transmission Date: 20110831
  Serious: No
  Sender: FDA-Public Use
  Company Number: 021222

PATIENT
  Sex: Female

DRUGS (5)
  1. CIMZIA [Suspect]
     Dosage: SUBCUTANEOUS
     Route: 058
  2. METHOTREXATE [Concomitant]
  3. MOBIC [Concomitant]
  4. TEGRETOL [Concomitant]
  5. PREDNISONE [Concomitant]

REACTIONS (2)
  - RASH [None]
  - PRURITUS GENERALISED [None]
